FAERS Safety Report 12831849 (Version 4)
Quarter: 2021Q2

REPORT INFORMATION
  Report Type: Other
  Country: IT (occurrence: IT)
  Receive Date: 20161010
  Receipt Date: 20210510
  Transmission Date: 20210716
  Serious: Yes (Death)
  Sender: FDA-Public Use
  Company Number: IT-ROCHE-1837979

PATIENT
  Age: 44 Year
  Sex: Female

DRUGS (3)
  1. CEFTRIAXONE. [Suspect]
     Active Substance: CEFTRIAXONE
     Indication: SNEEZING
  2. CEFTRIAXONE. [Suspect]
     Active Substance: CEFTRIAXONE
     Indication: OROPHARYNGEAL PAIN
  3. CEFTRIAXONE. [Suspect]
     Active Substance: CEFTRIAXONE
     Indication: COUGH
     Route: 030

REACTIONS (6)
  - Drug hypersensitivity [Fatal]
  - Dyspnoea [Fatal]
  - Anaphylactic shock [Fatal]
  - Multiple organ dysfunction syndrome [Fatal]
  - Self-medication [Fatal]
  - Cardiopulmonary failure [Fatal]
